FAERS Safety Report 25778662 (Version 1)
Quarter: 2025Q3

REPORT INFORMATION
  Report Type: Spontaneous
  Country: EU (occurrence: EU)
  Receive Date: 20250909
  Receipt Date: 20250909
  Transmission Date: 20251021
  Serious: Yes (Hospitalization, Other)
  Sender: TEVA
  Company Number: None

PATIENT
  Age: 60 Year
  Sex: Female

DRUGS (3)
  1. PACLITAXEL [Suspect]
     Active Substance: PACLITAXEL
     Indication: Triple negative breast cancer
     Route: 042
  2. KEYTRUDA [Suspect]
     Active Substance: PEMBROLIZUMAB
     Indication: Triple negative breast cancer
     Route: 042
     Dates: start: 20230109
  3. CARBOPLATIN [Suspect]
     Active Substance: CARBOPLATIN
     Indication: Triple negative breast cancer
     Route: 042

REACTIONS (16)
  - Presyncope [Recovered/Resolved]
  - Cough [Recovered/Resolved]
  - Rash [Recovering/Resolving]
  - Rhinitis [Recovered/Resolved]
  - Myalgia [Recovering/Resolving]
  - Epistaxis [Recovered/Resolved]
  - Anaemia [Recovering/Resolving]
  - Hyperkalaemia [Recovered/Resolved]
  - Constipation [Recovered/Resolved]
  - Abdominal pain [Recovering/Resolving]
  - Dysaesthesia [Recovering/Resolving]
  - Weight decreased [Recovered/Resolved]
  - Asthenia [Recovering/Resolving]
  - Neutropenia [Recovered/Resolved]
  - Paraesthesia [Recovering/Resolving]
  - Gastrointestinal disorder [Recovered/Resolved]

NARRATIVE: CASE EVENT DATE: 20230101
